FAERS Safety Report 20751818 (Version 1)
Quarter: 2022Q2

REPORT INFORMATION
  Report Type: Spontaneous
  Country: IT (occurrence: IT)
  Receive Date: 20220426
  Receipt Date: 20220426
  Transmission Date: 20220720
  Serious: Yes (Other)
  Sender: FDA-Public Use
  Company Number: IT-ORGANON-O2204ITA001761

PATIENT
  Sex: Female

DRUGS (2)
  1. NEXPLANON [Suspect]
     Active Substance: ETONOGESTREL
     Dosage: 1 IMPLANT IN THE LEFT ARM,BUT IN A DIFFERENT SITE
     Route: 059
     Dates: start: 20190511, end: 20220331
  2. NEXPLANON [Concomitant]
     Active Substance: ETONOGESTREL
     Indication: Contraception
     Dosage: 1 DOSAGE FORM, INTO LEFT ARM
     Route: 059
     Dates: start: 20160511, end: 20190511

REACTIONS (4)
  - General anaesthesia [Unknown]
  - Device dislocation [Recovered/Resolved]
  - Tendonitis [Not Recovered/Not Resolved]
  - Complication associated with device [Recovered/Resolved]

NARRATIVE: CASE EVENT DATE: 20210101
